FAERS Safety Report 18836682 (Version 1)
Quarter: 2021Q1

REPORT INFORMATION
  Report Type: Spontaneous
  Country: US (occurrence: US)
  Receive Date: 20210203
  Receipt Date: 20210203
  Transmission Date: 20210419
  Serious: No
  Sender: FDA-Public Use
  Company Number: US-ALLERGAN-2042472US

PATIENT
  Sex: Female

DRUGS (1)
  1. BOTOX [Suspect]
     Active Substance: ONABOTULINUMTOXINA
     Indication: MIGRAINE
     Dosage: UNK UNK, SINGLE
     Dates: start: 20200803, end: 20200803

REACTIONS (9)
  - Fatigue [Unknown]
  - Speech disorder [Recovered/Resolved]
  - Dizziness [Recovered/Resolved]
  - Nausea [Unknown]
  - Disorientation [Recovered/Resolved]
  - Headache [Not Recovered/Not Resolved]
  - Pain [Unknown]
  - Eyelid ptosis [Unknown]
  - Malaise [Recovered/Resolved]
